FAERS Safety Report 12338580 (Version 1)
Quarter: 2016Q2

REPORT INFORMATION
  Report Type: Spontaneous
  Country: US (occurrence: US)
  Receive Date: 20160505
  Receipt Date: 20160505
  Transmission Date: 20160815
  Serious: No
  Sender: FDA-Public Use
  Company Number: US-SA-2015SA073531

PATIENT
  Age: 63 Year
  Sex: Female

DRUGS (3)
  1. APIDRA SOLOSTAR [Suspect]
     Active Substance: INSULIN GLULISINE
     Indication: TYPE 2 DIABETES MELLITUS
     Dosage: DOSE: HER DOSE WAS SLIDING SCALE ,150=NO DOSE, 151-200= 3 UNITS, 201-250= 6 UNITS
     Route: 065
     Dates: start: 20150423, end: 20150528
  2. SOLOSTAR [Concomitant]
     Active Substance: DEVICE
     Dates: start: 20150423, end: 20150528
  3. LANTUS SOLOSTAR [Concomitant]
     Active Substance: INSULIN GLARGINE
     Dosage: DOSE:18 UNIT(S)

REACTIONS (4)
  - Rash [Not Recovered/Not Resolved]
  - Rash macular [Not Recovered/Not Resolved]
  - Urticaria [Not Recovered/Not Resolved]
  - Pruritus [Not Recovered/Not Resolved]
